FAERS Safety Report 4525137-8 (Version None)
Quarter: 2004Q4

REPORT INFORMATION
  Report Type: 
  Country: None (occurrence: None)
  Receive Date: 20041117
  Receipt Date: 20040109
  Transmission Date: 20050328
  Serious: Yes (Other)
  Sender: FDA-Public Use
  Company Number: 2004S1000122

PATIENT
  Age: 46 Year
  Sex: Male

DRUGS (11)
  1. CLOZAPINE [Suspect]
     Indication: SCHIZOPHRENIA
     Dosage: 400MG HS, ORAL
     Route: 048
     Dates: start: 19990501, end: 20040106
  2. CLOZAPINE [Suspect]
     Indication: SCHIZOPHRENIA
     Dosage: 400MG HS, ORAL
     Route: 048
     Dates: start: 20040108
  3. ALBUTEROL [Concomitant]
  4. DEPAKOTE [Concomitant]
  5. DIPHENHYDRAMINE [Concomitant]
  6. DOCUSATE SODIUM [Concomitant]
  7. LISINOPRIL [Concomitant]
  8. LORAZEPAM [Concomitant]
  9. QUETIAPINE FUMERATE [Concomitant]
  10. RANITIDINE [Concomitant]
  11. RISPERIDONE [Concomitant]

REACTIONS (2)
  - LEUKOPENIA [None]
  - NEUTROPHIL COUNT DECREASED [None]
